FAERS Safety Report 17483202 (Version 3)
Quarter: 2020Q1

REPORT INFORMATION
  Report Type: Report from Study
  Country: US (occurrence: US)
  Receive Date: 20200302
  Receipt Date: 20200317
  Transmission Date: 20200409
  Serious: Yes (Other)
  Sender: FDA-Public Use
  Company Number: US-PFIZER INC-2020092128

PATIENT
  Age: 76 Year
  Sex: Female

DRUGS (1)
  1. IBRANCE [Suspect]
     Active Substance: PALBOCICLIB
     Indication: BREAST CANCER FEMALE
     Dosage: 100 MG, CYCLIC (ONCE A DAY FOR 21 DAYS ON, 7 OFF)
     Route: 048
     Dates: start: 202001

REACTIONS (10)
  - Oral pain [Unknown]
  - Nervousness [Unknown]
  - Weight increased [Unknown]
  - Anxiety [Unknown]
  - Gastrooesophageal reflux disease [Unknown]
  - Neuropathy peripheral [Unknown]
  - Palpitations [Unknown]
  - Chest discomfort [Unknown]
  - Fatigue [Unknown]
  - Stomatitis [Unknown]
